FAERS Safety Report 22149771 (Version 2)
Quarter: 2023Q2

REPORT INFORMATION
  Report Type: Spontaneous
  Country: US (occurrence: US)
  Receive Date: 20230329
  Receipt Date: 20230404
  Transmission Date: 20230721
  Serious: Yes (Other)
  Sender: FDA-Public Use
  Company Number: US-BIOVITRUM-2023-US-007947

PATIENT
  Sex: Female
  Weight: 9 kg

DRUGS (4)
  1. SYNAGIS [Suspect]
     Active Substance: PALIVIZUMAB
     Indication: Cystic fibrosis
     Dosage: INTO THE MUSCLE, ONCE A MONTH
     Route: 030
     Dates: start: 20211119
  2. SODIUM CHLORIDE [Concomitant]
     Active Substance: SODIUM CHLORIDE
     Indication: Product used for unknown indication
     Dosage: 1 G TABLET
  3. MVW COMPLETE FORML TN PEDIATRIC [Concomitant]
     Indication: Product used for unknown indication
  4. CREON [Concomitant]
     Active Substance: PANCRELIPASE AMYLASE\PANCRELIPASE LIPASE\PANCRELIPASE PROTEASE
     Indication: Product used for unknown indication
     Dosage: 12K-38K-60 CAPSULE DR

REACTIONS (4)
  - Pseudomonas infection [Unknown]
  - Adenovirus infection [Unknown]
  - Ear infection [Unknown]
  - Viral infection [Unknown]
